FAERS Safety Report 17125212 (Version 1)
Quarter: 2019Q4

REPORT INFORMATION
  Report Type: Spontaneous
  Country: AT (occurrence: AT)
  Receive Date: 20191206
  Receipt Date: 20191206
  Transmission Date: 20200122
  Serious: Yes (Other)
  Sender: FDA-Public Use
  Company Number: AT-BAXTER-2019BAX024986

PATIENT
  Age: 43 Year
  Sex: Male

DRUGS (5)
  1. DEXAMETHASONE. [Suspect]
     Active Substance: DEXAMETHASONE
     Indication: PLASMA CELL MYELOMA
     Dosage: 7TH LINE: D-PACE (CYCLICAL)
     Route: 065
     Dates: start: 20190801
  2. DOXIL [Suspect]
     Active Substance: DOXORUBICIN HYDROCHLORIDE
     Indication: PLASMA CELL MYELOMA
     Dosage: 7TH LINE: D-PACE (CYCLICAL)
     Route: 065
     Dates: start: 20190801
  3. ENDOXAN ^BAXTER^ 1G TROCKENSTECHAMPULLE [Suspect]
     Active Substance: CYCLOPHOSPHAMIDE
     Indication: PLASMA CELL MYELOMA
     Dosage: 7TH LINE: D_PACE (CYCLICAL)
     Route: 065
     Dates: start: 20190801
  4. ETOPOSIDE. [Suspect]
     Active Substance: ETOPOSIDE
     Indication: PLASMA CELL MYELOMA
     Dosage: 7TH LINE: D-PACE (CYCLICAL)
     Route: 065
     Dates: start: 20190801
  5. CISPLATIN. [Suspect]
     Active Substance: CISPLATIN
     Indication: PLASMA CELL MYELOMA
     Dosage: 7TH LINE: D-PACE (CYCLICAL)
     Route: 065
     Dates: start: 20190801

REACTIONS (4)
  - Febrile neutropenia [Unknown]
  - Renal impairment [Unknown]
  - White blood cell count abnormal [Unknown]
  - Rash [Unknown]

NARRATIVE: CASE EVENT DATE: 2019
